FAERS Safety Report 12341892 (Version 8)
Quarter: 2016Q3

REPORT INFORMATION
  Report Type: Spontaneous
  Country: US (occurrence: US)
  Receive Date: 20160506
  Receipt Date: 20160908
  Transmission Date: 20161109
  Serious: Yes (Hospitalization)
  Sender: FDA-Public Use
  Company Number: US-ACTELION-A-NJ2016-135355

PATIENT
  Age: 63 Year
  Sex: Female

DRUGS (5)
  1. REMODULIN [Suspect]
     Active Substance: TREPROSTINIL
     Dosage: 0.069 UG/KG
     Route: 042
     Dates: start: 2016
  2. REMODULIN [Suspect]
     Active Substance: TREPROSTINIL
     Indication: PULMONARY HYPERTENSION
     Dosage: 0.069 UG/KG
     Route: 058
     Dates: start: 20091208
  3. CORTISONE [Suspect]
     Active Substance: CORTISONE\HYDROCORTISONE
     Indication: PRODUCT USED FOR UNKNOWN INDICATION
     Dosage: UNK
     Route: 065
  4. OPSUMIT [Suspect]
     Active Substance: MACITENTAN
     Indication: PULMONARY HYPERTENSION
     Dosage: 10 MG, QD
     Route: 048
     Dates: start: 20160324
  5. ADCIRCA [Concomitant]
     Active Substance: TADALAFIL

REACTIONS (12)
  - Extra dose administered [Unknown]
  - Infusion site infection [Unknown]
  - Headache [Unknown]
  - Dizziness [Unknown]
  - Nausea [Unknown]
  - Back disorder [Unknown]
  - Dyspnoea [Recovered/Resolved]
  - Skin infection [Unknown]
  - Catheter site pain [Recovering/Resolving]
  - Fatigue [Unknown]
  - Erythema [Unknown]
  - Diarrhoea [Unknown]

NARRATIVE: CASE EVENT DATE: 20160421
